FAERS Safety Report 4503165-6 (Version None)
Quarter: 2004Q4

REPORT INFORMATION
  Report Type: 
  Country: None (occurrence: None)
  Receive Date: 20041112
  Receipt Date: 20041027
  Transmission Date: 20050328
  Serious: Yes (Hospitalization)
  Sender: FDA-Public Use
  Company Number: 2004IC000891

PATIENT
  Age: 51 Year
  Sex: Male

DRUGS (1)
  1. FLUOROURACIL [Suspect]
     Indication: METASTASES TO LIVER
     Dosage: INTRA-ARTERIAL
     Route: 013

REACTIONS (2)
  - HEPATIC FUNCTION ABNORMAL [None]
  - THROMBOCYTOPENIA [None]
